FAERS Safety Report 7638129-7 (Version None)
Quarter: 2011Q3

REPORT INFORMATION
  Report Type: 
  Country: None (occurrence: None)
  Receive Date: 20110727
  Receipt Date: 20110719
  Transmission Date: 20111222
  Serious: Yes (Other)
  Sender: FDA-Public Use
  Company Number: US-US-EMD SERONO, INC.-7066815

PATIENT
  Sex: Female
  Weight: 104 kg

DRUGS (4)
  1. ZANAFLEX [Concomitant]
     Indication: MUSCLE SPASTICITY
     Dates: start: 20080101
  2. REBIF [Suspect]
     Indication: MULTIPLE SCLEROSIS
     Route: 058
     Dates: start: 20071108, end: 20110502
  3. UNSPECIFIED MEDICATIONS [Concomitant]
  4. UNSPECIFIED DEPRESSION MEDICATIONS [Concomitant]
     Indication: DEPRESSION

REACTIONS (2)
  - UTERINE CANCER [None]
  - INCISION SITE INFECTION [None]
